FAERS Safety Report 4319845-1 (Version None)
Quarter: 2004Q1

REPORT INFORMATION
  Report Type: 
  Country: None (occurrence: None)
  Receive Date: 20040319
  Receipt Date: 20040305
  Transmission Date: 20041129
  Serious: Yes (Other)
  Sender: FDA-Public Use
  Company Number: PHBS2004IN03152

PATIENT
  Age: 13 Year
  Sex: Male
  Weight: 36 kg

DRUGS (5)
  1. DESFERAL [Suspect]
     Indication: THALASSAEMIA BETA
     Dosage: 8-10 VIALS WEEKLY
  2. DIGOXIN [Concomitant]
  3. CARVEDILOL [Concomitant]
  4. CAPTOPRIL [Concomitant]
  5. DIURETICS [Concomitant]

REACTIONS (8)
  - CARDIAC FAILURE CONGESTIVE [None]
  - EJECTION FRACTION DECREASED [None]
  - MASS [None]
  - PAIN [None]
  - PRURITUS [None]
  - RASH [None]
  - TACHYCARDIA [None]
  - VENTRICULAR DYSFUNCTION [None]
